FAERS Safety Report 14233686 (Version 1)
Quarter: 2017Q4

REPORT INFORMATION
  Report Type: Spontaneous
  Country: US (occurrence: None)
  Receive Date: 20171128
  Receipt Date: 20171128
  Transmission Date: 20180321
  Serious: Yes (Life-Threatening, Hospitalization, Disabling, Other)
  Sender: FDA-Public Use
  Company Number: None

PATIENT
  Age: 53 Year
  Sex: Female
  Weight: 85.73 kg

DRUGS (1)
  1. BACTRIM DS [Suspect]
     Active Substance: SULFAMETHOXAZOLE\TRIMETHOPRIM
     Indication: PRODUCT USED FOR UNKNOWN INDICATION
     Dosage: ?          QUANTITY:.IST ANY RELEVANT TEATS O;?
     Route: 048
     Dates: start: 20171026, end: 20171104

REACTIONS (3)
  - Hypersensitivity [None]
  - Hepatic enzyme increased [None]
  - Malaise [None]

NARRATIVE: CASE EVENT DATE: 20171108
